FAERS Safety Report 21133993 (Version 1)
Quarter: 2022Q3

REPORT INFORMATION
  Report Type: Spontaneous
  Country: US (occurrence: US)
  Receive Date: 20220726
  Receipt Date: 20220726
  Transmission Date: 20221027
  Serious: No
  Sender: FDA-Public Use
  Company Number: US-OYSTER POINT PHARMA, INC.-2022OYS00667

PATIENT
  Age: 70 Year
  Sex: Female
  Weight: 62.132 kg

DRUGS (8)
  1. TYRVAYA [Suspect]
     Active Substance: VARENICLINE TARTRATE
     Indication: Dry eye
     Dosage: 1 SPRAY IN EACH NOSTRIL, 2X/DAY
     Route: 045
     Dates: start: 202206, end: 202206
  2. TYRVAYA [Suspect]
     Active Substance: VARENICLINE TARTRATE
     Dosage: 1 SPRAY IN EACH NOSTRIL, 2X/DAY
     Route: 045
     Dates: start: 20220619
  3. RESTASIS [Concomitant]
     Active Substance: CYCLOSPORINE
     Route: 047
  4. DULOXETINE [Concomitant]
     Active Substance: DULOXETINE
     Route: 048
  5. ATORVASTATIN [Concomitant]
     Active Substance: ATORVASTATIN
     Route: 048
  6. VITAMINS [Concomitant]
     Active Substance: VITAMINS
  7. SYSTANE (HYPROMELLOSE 2910 (4000 MPA.S)) [Concomitant]
     Active Substance: HYPROMELLOSE 2910 (4000 MPA.S)
  8. REFRESH CLASSIC [Concomitant]
     Active Substance: POLYVINYL ALCOHOL\POVIDONE

REACTIONS (4)
  - Productive cough [Not Recovered/Not Resolved]
  - Sneezing [Not Recovered/Not Resolved]
  - Throat irritation [Not Recovered/Not Resolved]
  - Product delivery mechanism issue [Not Recovered/Not Resolved]

NARRATIVE: CASE EVENT DATE: 20220601
